FAERS Safety Report 13243960 (Version 1)
Quarter: 2017Q1

REPORT INFORMATION
  Report Type: Spontaneous
  Country: US (occurrence: US)
  Receive Date: 20170217
  Receipt Date: 20170217
  Transmission Date: 20170428
  Serious: Yes (Other)
  Sender: FDA-Public Use
  Company Number: US-NAPPMUNDI-USA-2016-0132962

PATIENT
  Age: 60 Year
  Sex: Female

DRUGS (1)
  1. MORPHINE SULFATE EXTENDED-RELEASE TABLETS (RHODES 74-769, 74-862) [Suspect]
     Active Substance: MORPHINE SULFATE
     Indication: PROCEDURAL PAIN
     Dosage: 50 MG, BID
     Route: 048
     Dates: start: 201605, end: 20160804

REACTIONS (13)
  - Fall [Unknown]
  - Adverse reaction [Unknown]
  - Oedema [Recovering/Resolving]
  - Vision blurred [Recovered/Resolved]
  - Insomnia [Unknown]
  - Eructation [Unknown]
  - Somnolence [Unknown]
  - Cough [Unknown]
  - Blister [Recovering/Resolving]
  - Gait disturbance [Recovered/Resolved]
  - Peripheral swelling [Recovered/Resolved]
  - Abnormal dreams [Unknown]
  - Swelling [Recovered/Resolved]

NARRATIVE: CASE EVENT DATE: 2016
